FAERS Safety Report 19381473 (Version 1)
Quarter: 2021Q2

REPORT INFORMATION
  Report Type: Spontaneous
  Country: US (occurrence: US)
  Receive Date: 20210607
  Receipt Date: 20210607
  Transmission Date: 20210717
  Serious: No
  Sender: FDA-Public Use
  Company Number: US-PFIZER INC-2021200730

PATIENT
  Age: 85 Year
  Sex: Female

DRUGS (1)
  1. RETACRIT [Suspect]
     Active Substance: EPOETIN ALFA-EPBX
     Dosage: 20000 IU (20,000 UNITS SQ EVERY 2 WEEKS/4ML)
     Route: 058

REACTIONS (2)
  - Off label use [Unknown]
  - Asthenia [Unknown]
